FAERS Safety Report 5121571-6 (Version None)
Quarter: 2006Q4

REPORT INFORMATION
  Report Type: 
  Country: None (occurrence: None)
  Receive Date: 20061003
  Receipt Date: 20060918
  Transmission Date: 20070319
  Serious: No
  Sender: FDA-Public Use
  Company Number: 36457

PATIENT
  Age: 10 Month
  Sex: Female

DRUGS (1)
  1. CIPROFLOXACIN [Suspect]
     Dosage: OPHT
     Route: 047
     Dates: start: 20060714, end: 20060714

REACTIONS (6)
  - ANGIONEUROTIC OEDEMA [None]
  - CONJUNCTIVAL HAEMORRHAGE [None]
  - CRYING [None]
  - DYSPNOEA [None]
  - EYELID OEDEMA [None]
  - NERVOUSNESS [None]
